FAERS Safety Report 12714840 (Version 2)
Quarter: 2016Q4

REPORT INFORMATION
  Report Type: Spontaneous
  Country: JP (occurrence: JP)
  Receive Date: 20160905
  Receipt Date: 20161212
  Transmission Date: 20170207
  Serious: No
  Sender: FDA-Public Use
  Company Number: JP-ELI_LILLY_AND_COMPANY-JP201609000542

PATIENT
  Sex: Female
  Weight: 44.3 kg

DRUGS (3)
  1. BENZALIN                           /00036201/ [Concomitant]
     Active Substance: NITRAZEPAM
     Dosage: 5 MG, QD
     Route: 048
     Dates: start: 20120525, end: 20151030
  2. BENZALIN                           /00036201/ [Concomitant]
     Active Substance: NITRAZEPAM
     Indication: INSOMNIA
     Dosage: 5 MG, PRN
     Route: 048
     Dates: start: 20110628, end: 20120524
  3. CYMBALTA [Suspect]
     Active Substance: DULOXETINE HYDROCHLORIDE
     Indication: DEPRESSION
     Dosage: 20 MG, QD
     Route: 048
     Dates: start: 20120724

REACTIONS (2)
  - Maternal exposure during pregnancy [Recovered/Resolved]
  - Exposure during breast feeding [Recovered/Resolved]
